FAERS Safety Report 5211534-4 (Version None)
Quarter: 2007Q1

REPORT INFORMATION
  Report Type: 
  Country: None (occurrence: None)
  Receive Date: 20070117
  Receipt Date: 20070108
  Transmission Date: 20070707
  Serious: Yes (Death)
  Sender: FDA-Public Use
  Company Number: PL-ABBOTT-06P-129-0338941-00

PATIENT
  Age: 34 Year
  Sex: Male
  Weight: 50 kg

DRUGS (5)
  1. NORVIR [Suspect]
     Indication: HIV INFECTION
     Route: 048
     Dates: start: 20030302, end: 20030909
  2. LAMIVUDINE + ZIDOVUDINE [Suspect]
     Indication: HIV INFECTION
     Dosage: 600/300 MG
     Route: 048
  3. LAMIVUDINE [Suspect]
     Indication: HIV INFECTION
     Dosage: NOT REPORTED
  4. SAQUINAVIR [Suspect]
     Indication: HIV INFECTION
  5. ZYDOVUDINE [Suspect]
     Indication: DRUG USE FOR UNKNOWN INDICATION
     Dosage: NOT REPORTED

REACTIONS (3)
  - METASTASES TO LIVER [None]
  - METASTASES TO LYMPH NODES [None]
  - SMALL CELL LUNG CANCER STAGE UNSPECIFIED [None]
